FAERS Safety Report 13844359 (Version 2)
Quarter: 2017Q3

REPORT INFORMATION
  Report Type: Spontaneous
  Country: US (occurrence: US)
  Receive Date: 20170808
  Receipt Date: 20170901
  Transmission Date: 20171127
  Serious: Yes (Other)
  Sender: FDA-Public Use
  Company Number: US-PFIZER INC-2017340060

PATIENT
  Age: 14 Year
  Sex: Male
  Weight: 63.5 kg

DRUGS (2)
  1. ZOLOFT [Suspect]
     Active Substance: SERTRALINE HYDROCHLORIDE
     Dosage: 100 MG, UNK
  2. MELATONIN [Concomitant]
     Active Substance: MELATONIN
     Indication: SLEEP DISORDER
     Dosage: UNK

REACTIONS (6)
  - Anxiety [Unknown]
  - Product storage error [Unknown]
  - Agitation [Unknown]
  - Suicidal ideation [Unknown]
  - Thinking abnormal [Unknown]
  - Drug ineffective [Unknown]
